FAERS Safety Report 8276816-0 (Version None)
Quarter: 2012Q2

REPORT INFORMATION
  Report Type: 
  Country: None (occurrence: None)
  Receive Date: 20120412
  Receipt Date: 20120402
  Transmission Date: 20120825
  Serious: Yes (Hospitalization)
  Sender: FDA-Public Use
  Company Number: FR-NOVOPROD-330139

PATIENT
  Age: 72 Year
  Sex: Male
  Weight: 88 kg

DRUGS (9)
  1. METFORMIN HCL [Concomitant]
     Dosage: 2100 MG, QD
     Route: 048
  2. BUDESONIDE [Concomitant]
     Dosage: 800 UG, QD
     Route: 048
  3. FORADIL [Concomitant]
     Dosage: 36 UG, QD
     Route: 048
  4. ATORVASTATIN [Concomitant]
     Dosage: 20 MG, QD
     Route: 048
  5. FUROSEMIDE [Concomitant]
     Dosage: 20 MG, QD
  6. CLOPIDOGREL [Concomitant]
     Dosage: 75 MG, QD
     Route: 048
  7. LIRAGLUTIDE FLEXPEN [Suspect]
     Indication: TYPE 2 DIABETES MELLITUS
     Dosage: 1.8 MG, QD
     Route: 058
     Dates: start: 20110117
  8. VALSARTAN [Concomitant]
     Dosage: 160 MG, QD
  9. GLYBURIDE [Concomitant]
     Dosage: 12.5 MG, QD
     Route: 048

REACTIONS (2)
  - PERIPHERAL PARALYSIS [None]
  - VIITH NERVE PARALYSIS [None]
